FAERS Safety Report 7336459 (Version 2)
Quarter: 2012Q4

REPORT INFORMATION
  Report Type: 
  Country: US (occurrence: US)
  Receive Date: 20100330
  Receipt Date: 20120830
  Transmission Date: 20130627
  Serious: Yes (Other)
  Sender: FDA-Public Use
  Company Number: US-ELI_LILLY_AND_COMPANY-US201003004989

PATIENT
  Sex: Male

DRUGS (3)
  1. BYETTA [Suspect]
     Dosage: UNK, unknown
     Route: 058
     Dates: end: 200909
  2. METFORMIN [Concomitant]
  3. JANUVIA [Concomitant]

REACTIONS (2)
  - Pancreatitis [Unknown]
  - Weight decreased [Unknown]
